FAERS Safety Report 6925334-8 (Version None)
Quarter: 2010Q3

REPORT INFORMATION
  Report Type: 
  Country: None (occurrence: None)
  Receive Date: 20100816
  Receipt Date: 20100803
  Transmission Date: 20110219
  Serious: No
  Sender: FDA-Public Use
  Company Number: US-B.I. PHARMACEUTICALS,INC./RIDGEFIELD-2010-BP-08845BP

PATIENT
  Age: 52 Year
  Sex: Male

DRUGS (1)
  1. FLOMAX [Suspect]

REACTIONS (3)
  - DIZZINESS [None]
  - DRUG INTERACTION [None]
  - ORTHOSTATIC HYPOTENSION [None]
